FAERS Safety Report 22079468 (Version 2)
Quarter: 2023Q2

REPORT INFORMATION
  Report Type: Spontaneous
  Country: US (occurrence: US)
  Receive Date: 20230309
  Receipt Date: 20230609
  Transmission Date: 20230722
  Serious: No
  Sender: FDA-Public Use
  Company Number: US-BRISTOL-MYERS SQUIBB COMPANY-2023-032604

PATIENT
  Age: 61 Year
  Sex: Male
  Weight: 95.2 kg

DRUGS (2)
  1. REVLIMID [Suspect]
     Active Substance: LENALIDOMIDE
     Indication: Plasma cell myeloma
     Dosage: FREQ: D1-14 Q21 DAYS
     Route: 048
     Dates: start: 20221122
  2. REVLIMID [Suspect]
     Active Substance: LENALIDOMIDE
     Dosage: FREQ: D1-14 Q28 DAYS
     Route: 048
     Dates: start: 20221122

REACTIONS (3)
  - Sinusitis [Not Recovered/Not Resolved]
  - Light chain analysis increased [Not Recovered/Not Resolved]
  - Off label use [Unknown]

NARRATIVE: CASE EVENT DATE: 20230225
